FAERS Safety Report 20213045 (Version 4)
Quarter: 2022Q2

REPORT INFORMATION
  Report Type: Spontaneous
  Country: US (occurrence: US)
  Receive Date: 20211221
  Receipt Date: 20220502
  Transmission Date: 20220720
  Serious: No
  Sender: FDA-Public Use
  Company Number: US-SA-SAC20211216000388

PATIENT
  Age: 72 Year
  Sex: Female

DRUGS (17)
  1. DUPIXENT [Suspect]
     Active Substance: DUPILUMAB
     Indication: Neurodermatitis
     Dosage: 300 MG, QOW
     Route: 058
  2. PREDNISONE [Suspect]
     Active Substance: PREDNISONE
     Dosage: 1 1/2 TABLET BY MOUTH EVERY OTHER DAY
  3. PROAIR HFA [Concomitant]
     Active Substance: ALBUTEROL SULFATE
     Dosage: INHALER MCG/ACTUATION TAKE 2 PUFF(S) BY MOUTH EVERY 6 HOURS AS NEEDED FOR CHEST SYMPTOMS
     Route: 048
  4. ALBUTEROL [Concomitant]
     Active Substance: ALBUTEROL
     Dosage: INNAL SOLN 2.5 MG / 3 MI (0.083 %) USE L UNIT DOSE VIA NEBULIZER EVERY 6 HOURS AS NEEDED FOR CHEST S
  5. PROAIR HFA [Concomitant]
     Active Substance: ALBUTEROL SULFATE
     Indication: Asthma
  6. MOMETASONE FUROATE [Concomitant]
     Active Substance: MOMETASONE FUROATE
     Dosage: NASAL SPRAY 50 MCG/ACTUATION 2 INHALATIONS EACH NOSTRIL ONCE DAILY
  7. CLINDAMYCIN HYDROCHLORIDE [Concomitant]
     Active Substance: CLINDAMYCIN HYDROCHLORIDE
     Dosage: CLINDAMYCIN HCL 300 MG CAPSULE ONE CAPSULE Q 8 HOURS FOR 7 DAYS
     Route: 048
  8. CLINDAMYCIN HYDROCHLORIDE [Concomitant]
     Active Substance: CLINDAMYCIN HYDROCHLORIDE
     Dosage: CAPSULE 1 TABLET DAILY EVERY 8 HOURS
  9. LEVOCETIRIZINE [Concomitant]
     Active Substance: LEVOCETIRIZINE
     Dosage: TAKE 1 TABLET BY MOUTH EVERY DAY
     Route: 048
  10. METHYLPREDNISOLONE ACETATE [Concomitant]
     Active Substance: METHYLPREDNISOLONE ACETATE
  11. PATADAY [Concomitant]
     Active Substance: OLOPATADINE HYDROCHLORIDE
     Dosage: 1-2 DROPS EACH EYES TWICE DAILY INS DOESNT COVER PAZEO
  12. PAZEO [Concomitant]
     Active Substance: OLOPATADINE HYDROCHLORIDE
  13. KEFLEX [Concomitant]
     Active Substance: CEPHALEXIN
     Dosage: 500 MG, BID,1 TABLET
  14. LASIX [Concomitant]
     Active Substance: FUROSEMIDE
     Dosage: 1/2 TABLET, 1 TABLET TWICE DAILY
     Route: 048
  15. ZITHROMAX [Concomitant]
     Active Substance: AZITHROMYCIN DIHYDRATE
     Dosage: Z-PAK TABLET AS DIRECTED
  16. CYPROHEPTADINE [Concomitant]
     Active Substance: CYPROHEPTADINE
     Dosage: TABLET EVERY 8 HRS AS NEEDED
  17. TRIAMCINOLONE [Concomitant]
     Active Substance: TRIAMCINOLONE
     Dosage: APPLY TO AFFECTED AREA TWICE A DAY

REACTIONS (7)
  - Rash [Unknown]
  - Peripheral swelling [Unknown]
  - Burning sensation [Unknown]
  - Rash [Unknown]
  - Malaise [Unknown]
  - Rash erythematous [Unknown]
  - Product dose omission issue [Unknown]

NARRATIVE: CASE EVENT DATE: 20220101
